FAERS Safety Report 21394276 (Version 1)
Quarter: 2022Q3

REPORT INFORMATION
  Report Type: Spontaneous
  Country: DE (occurrence: DE)
  Receive Date: 20220930
  Receipt Date: 20220930
  Transmission Date: 20221027
  Serious: Yes (Hospitalization)
  Sender: FDA-Public Use
  Company Number: DE-ADRED-05789-01

PATIENT
  Age: 33 Year
  Sex: Female
  Weight: 90 kg

DRUGS (2)
  1. DEXAMETHASONE [Suspect]
     Active Substance: DEXAMETHASONE
     Indication: Product used for unknown indication
     Dosage: 1 DOSAGE FORMS DAILY; 0.5 MG, 1-0-0-0, UNIT DOSE : 1 DF , FREQUENCY : OD
  2. BROMOCRIPTINE [Concomitant]
     Active Substance: BROMOCRIPTINE
     Indication: Product used for unknown indication
     Dosage: 1.25 MG, EVERY OTHER DAY

REACTIONS (4)
  - Chest pain [Unknown]
  - Tachycardia [Unknown]
  - Palpitations [Unknown]
  - Hypokalaemia [Unknown]
